FAERS Safety Report 11457335 (Version 1)
Quarter: 2015Q3

REPORT INFORMATION
  Report Type: Spontaneous
  Country: US (occurrence: US)
  Receive Date: 20150904
  Receipt Date: 20150904
  Transmission Date: 20151125
  Serious: Yes (Hospitalization, Other)
  Sender: FDA-Public Use
  Company Number: US-AMGEN-USASP2015088735

PATIENT
  Age: 75 Year
  Sex: Female

DRUGS (5)
  1. ENBREL [Suspect]
     Active Substance: ETANERCEPT
     Indication: PSORIASIS
     Dosage: 50 MG, 2 TIMES/WK
     Route: 065
     Dates: start: 2004
  2. ENBREL [Suspect]
     Active Substance: ETANERCEPT
     Indication: PSORIATIC ARTHROPATHY
  3. AMOXICILLIN. [Suspect]
     Active Substance: AMOXICILLIN
     Indication: PROCEDURAL COMPLICATION
     Route: 065
  4. AMOXICILLIN. [Suspect]
     Active Substance: AMOXICILLIN
     Indication: TOOTHACHE
  5. AMOXICILLIN. [Suspect]
     Active Substance: AMOXICILLIN
     Indication: ENDODONTIC PROCEDURE

REACTIONS (5)
  - Clostridium difficile infection [Recovered/Resolved]
  - Endodontic procedure [Recovered/Resolved]
  - Pain [Recovered/Resolved]
  - Toothache [Recovered/Resolved]
  - Procedural complication [Recovered/Resolved]

NARRATIVE: CASE EVENT DATE: 2015
